FAERS Safety Report 18691216 (Version 2)
Quarter: 2021Q1

REPORT INFORMATION
  Report Type: Report from Study
  Country: UA (occurrence: UA)
  Receive Date: 20210101
  Receipt Date: 20210104
  Transmission Date: 20210419
  Serious: Yes (Death, Hospitalization)
  Sender: FDA-Public Use
  Company Number: UA-ASTRAZENECA-2020SF69217

PATIENT
  Age: 66 Year
  Sex: Male
  Weight: 61 kg

DRUGS (4)
  1. PEMBROLIZUMAB. [Suspect]
     Active Substance: PEMBROLIZUMAB
     Indication: GASTRIC CANCER
     Route: 042
     Dates: start: 20201123, end: 20201123
  2. OLAPARIB. [Suspect]
     Active Substance: OLAPARIB
     Indication: GASTRIC CANCER
     Route: 048
     Dates: start: 20201212, end: 20201212
  3. OLAPARIB. [Suspect]
     Active Substance: OLAPARIB
     Indication: GASTRIC CANCER
     Route: 048
     Dates: start: 20201124, end: 20201212
  4. OLAPARIB. [Suspect]
     Active Substance: OLAPARIB
     Indication: GASTRIC CANCER
     Route: 048
     Dates: start: 20201123, end: 20201123

REACTIONS (2)
  - Hydronephrosis [Recovering/Resolving]
  - Hepatorenal failure [Fatal]

NARRATIVE: CASE EVENT DATE: 20201204
